FAERS Safety Report 25379395 (Version 1)
Quarter: 2025Q2

REPORT INFORMATION
  Report Type: Spontaneous
  Country: US (occurrence: US)
  Receive Date: 20250530
  Receipt Date: 20250530
  Transmission Date: 20250716
  Serious: Yes (Other)
  Sender: BLUEPRINT MEDICINES
  Company Number: US-Blueprint Medicines Corporation-2025-AER-01133

PATIENT
  Age: 44 Year
  Sex: Female

DRUGS (1)
  1. AYVAKIT [Suspect]
     Active Substance: AVAPRITINIB
     Indication: Systemic mastocytosis
     Dosage: 25MG DAILY
     Route: 065
     Dates: start: 20250315

REACTIONS (6)
  - Condition aggravated [Unknown]
  - Systemic mastocytosis [Unknown]
  - Eye swelling [Unknown]
  - Hypersensitivity [Unknown]
  - Irritability [Unknown]
  - Fatigue [Unknown]
